FAERS Safety Report 14565552 (Version 2)
Quarter: 2018Q1

REPORT INFORMATION
  Report Type: Spontaneous
  Country: US (occurrence: US)
  Receive Date: 20180223
  Receipt Date: 20180223
  Transmission Date: 20180509
  Serious: No
  Sender: FDA-Public Use
  Company Number: US-AMERIGEN PHARMACEUTICALS, LTD-2042477

PATIENT
  Sex: Male

DRUGS (4)
  1. CARBIDOPA. [Suspect]
     Active Substance: CARBIDOPA
     Indication: PRODUCT USED FOR UNKNOWN INDICATION
  2. NEUPRO [Suspect]
     Active Substance: ROTIGOTINE
  3. AZILECT [Suspect]
     Active Substance: RASAGILINE MESYLATE
  4. ROPINIROLE. [Suspect]
     Active Substance: ROPINIROLE

REACTIONS (1)
  - Gambling disorder [Unknown]
